FAERS Safety Report 8315583-9 (Version None)
Quarter: 2012Q2

REPORT INFORMATION
  Report Type: 
  Country: None (occurrence: None)
  Receive Date: 20120426
  Receipt Date: 20120419
  Transmission Date: 20120825
  Serious: Yes (Hospitalization)
  Sender: FDA-Public Use
  Company Number: CA-ROCHE-1059526

PATIENT
  Sex: Male
  Weight: 124.85 kg

DRUGS (21)
  1. HYDRALAZINE HCL [Concomitant]
  2. EFFEXOR [Concomitant]
  3. VITAMIN B COMPLEX CAP [Concomitant]
  4. PREDNISONE [Concomitant]
  5. ATORVASTATIN [Concomitant]
  6. OMEGA 3-6-9 [Concomitant]
  7. FUROSEMIDE [Concomitant]
  8. CALCIUM NOS/MAGNESIUM NOS [Concomitant]
  9. DIAMICRON [Concomitant]
  10. LEVOTHYROXINE SODIUM [Concomitant]
  11. FOLIC ACID [Concomitant]
  12. SPIRONOLACTONE [Concomitant]
  13. ARAVA [Concomitant]
  14. VITALUX PLUS [Concomitant]
  15. ACTEMRA [Suspect]
     Indication: RHEUMATOID ARTHRITIS
     Route: 042
     Dates: start: 20120327
  16. ACETYLSALICYLIC ACID SRT [Concomitant]
  17. BISOPROLOL FUMARATE [Concomitant]
  18. DIOVAN [Concomitant]
  19. ASCORBIC ACID [Concomitant]
  20. HALIBUT OIL [Concomitant]
  21. HUMULIN N [Concomitant]

REACTIONS (2)
  - ULCER HAEMORRHAGE [None]
  - HYPERGLYCAEMIA [None]
